FAERS Safety Report 5024572-1 (Version None)
Quarter: 2006Q2

REPORT INFORMATION
  Report Type: 
  Country: None (occurrence: None)
  Receive Date: 20060607
  Receipt Date: 20060524
  Transmission Date: 20061013
  Serious: Yes (Other)
  Sender: FDA-Public Use
  Company Number: 2006068525

PATIENT

DRUGS (1)
  1. SUNITINIB MALATE (SUNITINIB MALATE) [Suspect]
     Indication: ILL-DEFINED DISORDER
     Dates: start: 20060314

REACTIONS (2)
  - FOOT AND MOUTH DISEASE [None]
  - PALMAR-PLANTAR ERYTHRODYSAESTHESIA SYNDROME [None]
